FAERS Safety Report 9218250 (Version 3)
Quarter: 2013Q4

REPORT INFORMATION
  Report Type: Spontaneous
  Country: US (occurrence: US)
  Receive Date: 20130408
  Receipt Date: 20131017
  Transmission Date: 20140711
  Serious: Yes (Hospitalization, Other)
  Sender: FDA-Public Use
  Company Number: US-AMGEN-USASP2013023333

PATIENT
  Age: 30 Year
  Sex: Female
  Weight: 73.47 kg

DRUGS (6)
  1. ENBREL [Suspect]
     Indication: JUVENILE IDIOPATHIC ARTHRITIS
     Dosage: 50 MG, QWK
     Route: 065
     Dates: start: 2008, end: 201009
  2. HYDROXYCHLOROQUINE [Concomitant]
     Dosage: 200 MG, BID
  3. PREDNISONE [Concomitant]
     Dosage: 5 MG, QD
  4. FOLIC ACID [Concomitant]
     Dosage: 400 MG, QD
     Dates: start: 201009
  5. CALCIUM [Concomitant]
     Dosage: 250 UNK, QD
  6. PRENATAL                           /00231801/ [Concomitant]

REACTIONS (8)
  - Premature separation of placenta [Recovered/Resolved]
  - Premature delivery [Recovered/Resolved]
  - Supraventricular tachycardia [Recovered/Resolved]
  - Palpitations [Recovered/Resolved]
  - Joint swelling [Recovered/Resolved]
  - Induced labour [Unknown]
  - Vacuum extractor delivery [Unknown]
  - Complication of delivery [Unknown]
